FAERS Safety Report 14225359 (Version 1)
Quarter: 2017Q4

REPORT INFORMATION
  Report Type: Spontaneous
  Country: US (occurrence: US)
  Receive Date: 20171127
  Receipt Date: 20171127
  Transmission Date: 20180321
  Serious: No
  Sender: FDA-Public Use
  Company Number: US-PFIZER INC-2017505739

PATIENT
  Age: 72 Year
  Sex: Male
  Weight: 69.85 kg

DRUGS (3)
  1. COLESTIPOL HCL [Suspect]
     Active Substance: COLESTIPOL HYDROCHLORIDE
     Indication: DIARRHOEA
  2. NEXIUM 24HR [Concomitant]
     Active Substance: ESOMEPRAZOLE MAGNESIUM
     Indication: CHEST PAIN
     Dosage: ONCE BY MOUTH EVERY MORNING
     Route: 048
  3. COLESTIPOL HCL [Suspect]
     Active Substance: COLESTIPOL HYDROCHLORIDE
     Indication: WEIGHT DECREASED
     Dosage: 2 G, 3X/DAY (1GM, TWO TABLETS BY MOUTH THREE TIMES A DAY)
     Route: 048

REACTIONS (1)
  - Drug ineffective for unapproved indication [Unknown]
